FAERS Safety Report 19075889 (Version 3)
Quarter: 2024Q1

REPORT INFORMATION
  Report Type: Spontaneous
  Country: DE (occurrence: DE)
  Receive Date: 20210331
  Receipt Date: 20240328
  Transmission Date: 20240410
  Serious: Yes (Other)
  Sender: FDA-Public Use
  Company Number: DE-CELLTRION INC.-2021DE004200

PATIENT

DRUGS (8)
  1. INFLIXIMAB [Suspect]
     Active Substance: INFLIXIMAB
     Indication: Colitis ulcerative
     Dosage: UNK
     Route: 041
  2. INFLIXIMAB [Suspect]
     Active Substance: INFLIXIMAB
     Dosage: DURATION: 1.5 YEARS
     Route: 065
  3. INFLIXIMAB [Suspect]
     Active Substance: INFLIXIMAB
     Dosage: UNK
     Route: 042
  4. RIFAMPIN [Suspect]
     Active Substance: RIFAMPIN
     Indication: Mycobacterium marinum infection
     Dosage: 600 MG, QD (DURATION: 1.167 YEARS)
     Route: 048
  5. RIFAMPIN [Suspect]
     Active Substance: RIFAMPIN
     Dosage: 450 MG (DURATION: 1.167 YEARS) TWO TIMES
     Route: 048
  6. ETHAMBUTOL [Suspect]
     Active Substance: ETHAMBUTOL HYDROCHLORIDE
     Indication: Mycobacterium marinum infection
     Dosage: 2 G
     Route: 048
  7. ETHAMBUTOL [Suspect]
     Active Substance: ETHAMBUTOL HYDROCHLORIDE
     Dosage: 1200 MG, QD
     Route: 048
  8. CLARITHROMYCIN [Suspect]
     Active Substance: CLARITHROMYCIN
     Indication: Mycobacterium marinum infection
     Dosage: 1000 MG, QD (DURATION: 1.167 YEARS)
     Route: 048

REACTIONS (5)
  - Limb injury [Unknown]
  - Mycobacterium marinum infection [Recovering/Resolving]
  - Immunosuppression [Unknown]
  - Subcutaneous abscess [Unknown]
  - Therapeutic response delayed [Unknown]
